FAERS Safety Report 9001094 (Version 1)
Quarter: 2012Q4

REPORT INFORMATION
  Report Type: Spontaneous
  Country: US (occurrence: None)
  Receive Date: 20121226
  Receipt Date: 20121226
  Transmission Date: 20130627
  Serious: Yes (Other)
  Sender: FDA-Public Use
  Company Number: AXC-2012-000584

PATIENT
  Age: 50 Year
  Sex: Male

DRUGS (1)
  1. MESALAMINE [Suspect]
     Indication: CROHN^S DISEASE

REACTIONS (1)
  - Nephrotic syndrome [None]
